FAERS Safety Report 5102159-X (Version None)
Quarter: 2006Q3

REPORT INFORMATION
  Report Type: 
  Country: None (occurrence: None)
  Receive Date: 20060912
  Receipt Date: 20060901
  Transmission Date: 20061208
  Serious: Yes (Hospitalization)
  Sender: FDA-Public Use
  Company Number: DE-JNJFOC-20060900793

PATIENT
  Sex: Female
  Weight: 75 kg

DRUGS (4)
  1. REMICADE [Suspect]
     Route: 042
  2. REMICADE [Suspect]
     Indication: CROHN'S DISEASE
     Route: 042
  3. DECORTIN H [Concomitant]
     Route: 065
  4. DECORTIN H [Concomitant]
     Indication: CROHN'S DISEASE
     Route: 065

REACTIONS (1)
  - GRAND MAL CONVULSION [None]
